FAERS Safety Report 25817488 (Version 2)
Quarter: 2025Q3

REPORT INFORMATION
  Report Type: Spontaneous
  Country: JP (occurrence: JP)
  Receive Date: 20250918
  Receipt Date: 20250925
  Transmission Date: 20251020
  Serious: Yes (Other)
  Sender: BAUSCH AND LOMB
  Company Number: JP-MLMSERVICE-20250905-PI637979-00071-1

PATIENT
  Age: 63 Year
  Sex: Female

DRUGS (2)
  1. BUDESONIDE [Suspect]
     Active Substance: BUDESONIDE
     Indication: Colitis ulcerative
     Route: 054
  2. MESALAMINE [Suspect]
     Active Substance: MESALAMINE
     Indication: Colitis ulcerative
     Route: 065

REACTIONS (3)
  - Gastrointestinal lymphoma [Recovered/Resolved]
  - Plasmablastic lymphoma [Recovered/Resolved]
  - Epstein-Barr virus infection [Recovered/Resolved]
